FAERS Safety Report 20297334 (Version 1)
Quarter: 2022Q1

REPORT INFORMATION
  Report Type: Other
  Country: US (occurrence: None)
  Receive Date: 20220105
  Receipt Date: 20220105
  Transmission Date: 20220423
  Serious: Yes (Other)
  Sender: FDA-Public Use
  Company Number: US-ROCHE-2663013

PATIENT
  Sex: Male
  Weight: 84.36 kg

DRUGS (7)
  1. ESBRIET [Suspect]
     Active Substance: PIRFENIDONE
     Indication: Chronic obstructive pulmonary disease
     Dosage: TAKE 1 TABLET BY MOUTH 3 TIMES A DAY WITH MEALS FOR 7 DAYS
     Route: 048
     Dates: start: 201811
  2. ESBRIET [Suspect]
     Active Substance: PIRFENIDONE
     Indication: Idiopathic pulmonary fibrosis
     Dosage: TAKE 2 TABLET(S) BY MOUTH 3 TIMES A DAY WITH MEALS FOR 7 DAYS
     Route: 048
  3. ESBRIET [Suspect]
     Active Substance: PIRFENIDONE
     Dosage: TAKE 3 TABLET(S) BY MOUTH 3 TIMES A DAY WITH MEALS.
     Route: 048
  4. ESBRIET [Suspect]
     Active Substance: PIRFENIDONE
     Dosage: TAKE 1 TABLET BY MOUTH 3 TIMES A DAY
     Route: 048
  5. BEVESPI AEROSPHERE [Concomitant]
     Active Substance: FORMOTEROL FUMARATE\GLYCOPYRROLATE
     Dosage: DAILY
     Route: 048
  6. FLUTICASONE PROPIONATE [Concomitant]
     Active Substance: FLUTICASONE PROPIONATE
     Dosage: 50 MCG SPRAY
  7. GABAPENTIN [Concomitant]
     Active Substance: GABAPENTIN
     Dosage: 300 MG CAPSULE, 600 MG= 2 CAPS BID
     Route: 048

REACTIONS (9)
  - Headache [Unknown]
  - Muscle spasms [Unknown]
  - Clubbing [Unknown]
  - Chronic obstructive pulmonary disease [Unknown]
  - Cystic fibrosis [Unknown]
  - Rash [Unknown]
  - Wheezing [Unknown]
  - Idiopathic pneumonia syndrome [Unknown]
  - Interstitial lung disease [Unknown]
